FAERS Safety Report 15201110 (Version 9)
Quarter: 2019Q2

REPORT INFORMATION
  Report Type: Spontaneous
  Country: US (occurrence: US)
  Receive Date: 20180726
  Receipt Date: 20190402
  Transmission Date: 20190711
  Serious: Yes (Other)
  Sender: FDA-Public Use
  Company Number: US-PFIZER INC-2018295377

PATIENT
  Age: 77 Year
  Sex: Male
  Weight: 84 kg

DRUGS (3)
  1. IBRANCE [Suspect]
     Active Substance: PALBOCICLIB
     Indication: BREAST CANCER MALE
     Dosage: 125 MG, CYCLIC (FOR 21 DAYS ON 7 DAYS OFF)
     Route: 048
     Dates: start: 20180322, end: 2018
  2. XGEVA [Concomitant]
     Active Substance: DENOSUMAB
     Indication: BREAST CANCER MALE
     Dosage: UNK
     Dates: start: 20180309
  3. ANASTROZOLE. [Concomitant]
     Active Substance: ANASTROZOLE
     Indication: BREAST CANCER MALE
     Dosage: UNK
     Dates: start: 20180309

REACTIONS (3)
  - Neutropenia [Recovered/Resolved]
  - Product use issue [Unknown]
  - Deafness [Unknown]

NARRATIVE: CASE EVENT DATE: 20180322
